FAERS Safety Report 5875748-2 (Version None)
Quarter: 2008Q3

REPORT INFORMATION
  Report Type: 
  Country: None (occurrence: None)
  Receive Date: 20080905
  Receipt Date: 20080820
  Transmission Date: 20090109
  Serious: Yes (Hospitalization)
  Sender: FDA-Public Use
  Company Number: 8036574

PATIENT
  Age: 29 Year
  Sex: Male

DRUGS (6)
  1. KEPPRA [Suspect]
     Indication: POST-ANOXIC MYOCLONUS
     Dosage: 500 MG 2/D IV
     Route: 042
     Dates: start: 20080809, end: 20080809
  2. KEPPRA [Suspect]
     Indication: POST-ANOXIC MYOCLONUS
     Dosage: 500 MG 3/D IV
     Route: 042
     Dates: start: 20080810, end: 20080816
  3. KEPPRA [Suspect]
     Indication: POST-ANOXIC MYOCLONUS
     Dosage: 750 MG 2/D IV
     Route: 042
     Dates: start: 20080817, end: 20080820
  4. VALIUM [Suspect]
     Indication: POST-ANOXIC MYOCLONUS
     Dosage: 10 MG 3/D
     Dates: start: 20080808, end: 20080808
  5. VALIUM [Suspect]
     Indication: POST-ANOXIC MYOCLONUS
     Dosage: 10 MG 4/D
     Dates: start: 20080809, end: 20080809
  6. ATARAX [Concomitant]

REACTIONS (6)
  - ANOXIC ENCEPHALOPATHY [None]
  - CELL DEATH [None]
  - CHOLESTASIS [None]
  - COMA [None]
  - HYPERTONIA [None]
  - HYPOTONIA [None]
